FAERS Safety Report 9245883 (Version 1)
Quarter: 2013Q2

REPORT INFORMATION
  Report Type: Spontaneous
  Country: JP (occurrence: JP)
  Receive Date: 20130422
  Receipt Date: 20130422
  Transmission Date: 20140414
  Serious: Yes (Death)
  Sender: FDA-Public Use
  Company Number: JP-NOVOPROD-375762

PATIENT
  Age: 60 Year
  Sex: Male
  Weight: 54 kg

DRUGS (4)
  1. NOVOSEVEN HI [Suspect]
     Indication: ACQUIRED HAEMOPHILIA
     Dosage: FOR THREE DAYS
     Route: 042
     Dates: start: 201212, end: 201212
  2. NOVOSEVEN HI [Suspect]
     Dosage: 7 MG, TID
     Route: 042
     Dates: start: 201301, end: 201301
  3. NOVOSEVEN HI [Suspect]
     Dosage: 7 MG, BID
     Route: 042
     Dates: start: 20130315, end: 20130315
  4. ENDOXAN                            /00021101/ [Concomitant]
     Indication: PROPHYLAXIS

REACTIONS (1)
  - Shock haemorrhagic [Fatal]
